FAERS Safety Report 8163823-1 (Version None)
Quarter: 2012Q1

REPORT INFORMATION
  Report Type: 
  Country: None (occurrence: None)
  Receive Date: 20120103
  Receipt Date: 20111120
  Transmission Date: 20120608
  Serious: No
  Sender: FDA-Public Use
  Company Number: AE-2011-003824

PATIENT
  Age: 53 Year
  Sex: Male
  Weight: 95.2554 kg

DRUGS (3)
  1. PEGASYS [Concomitant]
  2. RIBAVIRIN [Concomitant]
  3. INCIVEK [Suspect]
     Dosage: 2250 MG (750 MG,3 IN 1 D),ORAL
     Route: 048
     Dates: start: 20110909, end: 20111116

REACTIONS (6)
  - DRY SKIN [None]
  - RASH [None]
  - HAEMORRHOIDS [None]
  - ANAL PRURITUS [None]
  - PRURITUS [None]
  - FATIGUE [None]
